FAERS Safety Report 5922483-8 (Version None)
Quarter: 2008Q4

REPORT INFORMATION
  Report Type: 
  Country: None (occurrence: None)
  Receive Date: 20081017
  Receipt Date: 20081008
  Transmission Date: 20090506
  Serious: Yes (Hospitalization)
  Sender: FDA-Public Use
  Company Number: JP-NOVOPROD-276890

PATIENT
  Age: 65 Year
  Sex: Male
  Weight: 78 kg

DRUGS (1)
  1. GLUCAGON [Suspect]
     Indication: COLONOSCOPY
     Dosage: 1 MG, SINGLE
     Route: 030
     Dates: start: 20080624, end: 20080624

REACTIONS (1)
  - SHOCK [None]
